FAERS Safety Report 4292503-8 (Version None)
Quarter: 2004Q1

REPORT INFORMATION
  Report Type: 
  Country: None (occurrence: None)
  Receive Date: 20040211
  Receipt Date: 20040122
  Transmission Date: 20041129
  Serious: Yes (Life-Threatening, Hospitalization)
  Sender: FDA-Public Use
  Company Number: PHBS2004JP01092

PATIENT
  Age: 53 Year
  Sex: Male

DRUGS (3)
  1. PERDIPINE [Suspect]
     Indication: AORTIC DISSECTION
     Dates: start: 20030212, end: 20030318
  2. METOPROLOL [Concomitant]
  3. MILLISROL [Suspect]
     Indication: AORTIC DISSECTION
     Dates: start: 20030212, end: 20030318

REACTIONS (7)
  - AORTIC DISSECTION [None]
  - DISEASE PROGRESSION [None]
  - DYSPNOEA EXACERBATED [None]
  - HYPOXIA [None]
  - INFLAMMATION [None]
  - PLEURAL EFFUSION [None]
  - THROMBOSIS [None]
